FAERS Safety Report 7227517-9 (Version None)
Quarter: 2011Q1

REPORT INFORMATION
  Report Type: 
  Country: None (occurrence: None)
  Receive Date: 20110114
  Receipt Date: 20110110
  Transmission Date: 20110831
  Serious: Yes (Hospitalization)
  Sender: FDA-Public Use
  Company Number: US-AMGEN-USASP2011001493

PATIENT

DRUGS (1)
  1. ENBREL [Suspect]
     Indication: RHEUMATOID ARTHRITIS
     Dosage: 50 MG, QWK
     Dates: start: 20090105

REACTIONS (10)
  - BACK PAIN [None]
  - MASS [None]
  - NASOPHARYNGITIS [None]
  - OSTEOARTHRITIS [None]
  - FLANK PAIN [None]
  - LIGAMENT RUPTURE [None]
  - RADIAL NERVE PALSY [None]
  - MEMORY IMPAIRMENT [None]
  - SKIN FISSURES [None]
  - NERVE ROOT COMPRESSION [None]
